FAERS Safety Report 24689710 (Version 1)
Quarter: 2024Q4

REPORT INFORMATION
  Report Type: Spontaneous
  Country: CA (occurrence: CA)
  Receive Date: 20241203
  Receipt Date: 20241203
  Transmission Date: 20250114
  Serious: Yes (Death, Other)
  Sender: BRISTOL-MYERS SQUIBB COMPANY
  Company Number: CA-BRISTOL-MYERS SQUIBB COMPANY-2024-187455

PATIENT
  Age: 44 Year
  Sex: Female
  Weight: 97 kg

DRUGS (143)
  1. ORENCIA [Suspect]
     Active Substance: ABATACEPT
     Indication: Rheumatoid arthritis
     Route: 058
  2. ORENCIA [Suspect]
     Active Substance: ABATACEPT
     Route: 058
  3. ORENCIA [Suspect]
     Active Substance: ABATACEPT
     Route: 058
  4. ORENCIA [Suspect]
     Active Substance: ABATACEPT
     Route: 058
  5. ORENCIA [Suspect]
     Active Substance: ABATACEPT
     Indication: Rheumatoid arthritis
     Route: 042
  6. ORENCIA [Suspect]
     Active Substance: ABATACEPT
     Route: 042
  7. ORENCIA [Suspect]
     Active Substance: ABATACEPT
     Route: 042
  8. VITAMIN C [Concomitant]
     Active Substance: ASCORBIC ACID
     Indication: Product used for unknown indication
     Route: 016
  9. VITAMIN C [Concomitant]
     Active Substance: ASCORBIC ACID
  10. ACETAMINOPHEN [Concomitant]
     Active Substance: ACETAMINOPHEN
     Indication: Pyrexia
  11. ACETAMINOPHEN AND CODEINE [Concomitant]
     Active Substance: ACETAMINOPHEN\CODEINE PHOSPHATE
     Indication: Product used for unknown indication
  12. ACETAMINOPHEN AND CODEINE [Concomitant]
     Active Substance: ACETAMINOPHEN\CODEINE PHOSPHATE
  13. ACETAMINOPHEN\OXYCODONE HYDROCHLORIDE [Concomitant]
     Active Substance: ACETAMINOPHEN\OXYCODONE HYDROCHLORIDE
     Indication: Product used for unknown indication
  14. ACTEMRA [Concomitant]
     Active Substance: TOCILIZUMAB
     Indication: Rheumatoid arthritis
     Route: 042
  15. ACTEMRA [Concomitant]
     Active Substance: TOCILIZUMAB
     Route: 058
  16. ACTEMRA [Concomitant]
     Active Substance: TOCILIZUMAB
     Route: 042
  17. ACTEMRA [Concomitant]
     Active Substance: TOCILIZUMAB
     Route: 042
  18. ACTEMRA [Concomitant]
     Active Substance: TOCILIZUMAB
     Route: 042
  19. ACTEMRA [Concomitant]
     Active Substance: TOCILIZUMAB
  20. ACTEMRA [Concomitant]
     Active Substance: TOCILIZUMAB
     Route: 048
  21. ACTEMRA [Concomitant]
     Active Substance: TOCILIZUMAB
     Route: 042
  22. ADALIMUMAB [Concomitant]
     Active Substance: ADALIMUMAB
     Indication: Rheumatoid arthritis
     Route: 058
  23. ALENDRONATE SODIUM [Concomitant]
     Active Substance: ALENDRONATE SODIUM
     Indication: Rheumatoid arthritis
     Route: 048
  24. ALENDRONIC ACID [Concomitant]
     Active Substance: ALENDRONIC ACID
     Indication: Rheumatoid arthritis
     Route: 048
  25. PANTOPRAZOLE SODIUM ANHYDROUS [Concomitant]
     Active Substance: PANTOPRAZOLE SODIUM ANHYDROUS
     Indication: Product used for unknown indication
  26. ACETAMINOPHEN [Concomitant]
     Active Substance: ACETAMINOPHEN
     Indication: Product used for unknown indication
  27. PREDNISONE [Concomitant]
     Active Substance: PREDNISONE
     Indication: Rheumatoid arthritis
     Route: 048
  28. ARAVA [Concomitant]
     Active Substance: LEFLUNOMIDE
     Indication: Rheumatoid arthritis
     Route: 048
  29. ACETAMINOPHEN [Concomitant]
     Active Substance: ACETAMINOPHEN
     Indication: Product used for unknown indication
  30. ATIVAN [Concomitant]
     Active Substance: LORAZEPAM
     Indication: Product used for unknown indication
  31. CAFFEINE [Concomitant]
     Active Substance: CAFFEINE
     Indication: Product used for unknown indication
  32. CALCIUM CARBONATE [Concomitant]
     Active Substance: CALCIUM CARBONATE
     Indication: Product used for unknown indication
  33. CALCIUM GLUBIONATE [Concomitant]
     Active Substance: CALCIUM GLUBIONATE
     Indication: Product used for unknown indication
  34. CETIRIZINE [Concomitant]
     Active Substance: CETIRIZINE HYDROCHLORIDE
     Indication: Product used for unknown indication
  35. CETIRIZINE HYDROCHLORIDE [Concomitant]
     Active Substance: CETIRIZINE HYDROCHLORIDE
     Indication: Rheumatoid arthritis
     Route: 042
  36. CETIRIZINE HYDROCHLORIDE [Concomitant]
     Active Substance: CETIRIZINE HYDROCHLORIDE
  37. CETIRIZINE HYDROCHLORIDE [Concomitant]
     Active Substance: CETIRIZINE HYDROCHLORIDE
  38. CETIRIZINE HYDROCHLORIDE [Concomitant]
     Active Substance: CETIRIZINE HYDROCHLORIDE
  39. CHLORAPREP [Concomitant]
     Active Substance: CHLORHEXIDINE GLUCONATE\ISOPROPYL ALCOHOL
     Indication: Product used for unknown indication
     Route: 061
  40. CHLORHEXIDINE [Concomitant]
     Active Substance: CHLORHEXIDINE
     Indication: Product used for unknown indication
     Route: 061
  41. CHLORHEXIDINE [Concomitant]
     Active Substance: CHLORHEXIDINE
     Route: 002
  42. CHLORHEXIDINE [Concomitant]
     Active Substance: CHLORHEXIDINE
  43. CHLORHEXIDINE [Concomitant]
     Active Substance: CHLORHEXIDINE
     Route: 048
  44. CHOLECALCIFEROL [Concomitant]
     Active Substance: CHOLECALCIFEROL
     Indication: Product used for unknown indication
  45. CIMZIA [Concomitant]
     Active Substance: CERTOLIZUMAB PEGOL
     Indication: Rheumatoid arthritis
  46. CIMZIA [Concomitant]
     Active Substance: CERTOLIZUMAB PEGOL
     Route: 058
  47. CIMZIA [Concomitant]
     Active Substance: CERTOLIZUMAB PEGOL
  48. CODEINE [Concomitant]
     Active Substance: CODEINE
     Indication: Product used for unknown indication
  49. CORTISONE (HYDROCORTISONE) [Concomitant]
     Active Substance: HYDROCORTISONE
     Indication: Rheumatoid arthritis
  50. CORTISONE (HYDROCORTISONE) [Concomitant]
     Active Substance: HYDROCORTISONE
     Route: 003
  51. CORTISONE ACETATE [Concomitant]
     Active Substance: CORTISONE ACETATE
     Indication: Rheumatoid arthritis
     Route: 061
  52. COSENTYX [Concomitant]
     Active Substance: SECUKINUMAB
     Indication: Product used for unknown indication
  53. DESOGESTREL\ETHINYL ESTRADIOL [Concomitant]
     Active Substance: DESOGESTREL\ETHINYL ESTRADIOL
     Indication: Product used for unknown indication
  54. DESOXIMETASONE [Concomitant]
     Active Substance: DESOXIMETASONE
     Indication: Rheumatoid arthritis
     Route: 003
  55. DESOXIMETASONE [Concomitant]
     Active Substance: DESOXIMETASONE
     Route: 048
  56. DESOXIMETASONE [Concomitant]
     Active Substance: DESOXIMETASONE
     Route: 061
  57. DESOXIMETASONE [Concomitant]
     Active Substance: DESOXIMETASONE
     Route: 003
  58. DESOXIMETASONE [Concomitant]
     Active Substance: DESOXIMETASONE
     Route: 058
  59. DEXTROMETHORPHAN HYDROBROMIDE [Concomitant]
     Active Substance: DEXTROMETHORPHAN HYDROBROMIDE
     Indication: Product used for unknown indication
  60. DICLOFENAC [Concomitant]
     Active Substance: DICLOFENAC
     Indication: Product used for unknown indication
  61. DICLOFENAC POTASSIUM [Concomitant]
     Active Substance: DICLOFENAC POTASSIUM
     Indication: Rheumatoid arthritis
  62. DICLOFENAC SODIUM [Concomitant]
     Active Substance: DICLOFENAC SODIUM
     Indication: Rheumatoid arthritis
  63. ENBREL [Concomitant]
     Active Substance: ETANERCEPT
     Indication: Rheumatoid arthritis
     Route: 058
  64. ENBREL [Concomitant]
     Active Substance: ETANERCEPT
     Route: 016
  65. ENBREL [Concomitant]
     Active Substance: ETANERCEPT
  66. ENBREL [Concomitant]
     Active Substance: ETANERCEPT
     Route: 058
  67. ENBREL [Concomitant]
     Active Substance: ETANERCEPT
     Route: 058
  68. ERELZI [Concomitant]
     Active Substance: ETANERCEPT-SZZS
     Indication: Rheumatoid arthritis
  69. ERGOCALCIFEROL\RETINOL [Concomitant]
     Active Substance: ERGOCALCIFEROL\RETINOL
     Indication: Product used for unknown indication
  70. FOLIC ACID [Concomitant]
     Active Substance: FOLIC ACID
     Indication: Rheumatoid arthritis
  71. FOLIC ACID [Concomitant]
     Active Substance: FOLIC ACID
  72. FOSAMAX [Concomitant]
     Active Substance: ALENDRONATE SODIUM
     Indication: Rheumatoid arthritis
     Route: 048
  73. GLUCOSAMINE [Concomitant]
     Active Substance: GLUCOSAMINE
     Indication: Product used for unknown indication
  74. HUMIRA [Concomitant]
     Active Substance: ADALIMUMAB
     Indication: Rheumatoid arthritis
  75. HYDROXYCHLOROQUINE [Concomitant]
     Active Substance: HYDROXYCHLOROQUINE
     Indication: Systemic lupus erythematosus
  76. HYDROXYCHLOROQUINE [Concomitant]
     Active Substance: HYDROXYCHLOROQUINE
     Indication: Rheumatoid arthritis
     Route: 016
  77. HYDROXYCHLOROQUINE SULFATE [Concomitant]
     Active Substance: HYDROXYCHLOROQUINE SULFATE
     Indication: Rheumatoid arthritis
     Route: 048
  78. IBUPROFEN [Concomitant]
     Active Substance: IBUPROFEN
     Indication: Product used for unknown indication
  79. INFLIXIMAB [Concomitant]
     Active Substance: INFLIXIMAB
     Indication: Rheumatoid arthritis
  80. ISOPROPYL ALCOHOL [Concomitant]
     Active Substance: ISOPROPYL ALCOHOL
     Indication: Product used for unknown indication
     Route: 061
  81. LANSOPRAZOLE [Concomitant]
     Active Substance: LANSOPRAZOLE
     Indication: Product used for unknown indication
  82. LEFLUNOMIDE [Concomitant]
     Active Substance: LEFLUNOMIDE
     Indication: Rheumatoid arthritis
     Route: 048
  83. LEFLUNOMIDE [Concomitant]
     Active Substance: LEFLUNOMIDE
     Route: 048
  84. LEFLUNOMIDE [Concomitant]
     Active Substance: LEFLUNOMIDE
  85. LORAZEPAM [Concomitant]
     Active Substance: LORAZEPAM
     Indication: Product used for unknown indication
  86. MARVELON [Concomitant]
     Active Substance: DESOGESTREL\ETHINYL ESTRADIOL
     Indication: Product used for unknown indication
  87. METHOTREXATE [Concomitant]
     Active Substance: METHOTREXATE
     Indication: Rheumatoid arthritis
     Route: 052
  88. METHOTREXATE [Concomitant]
     Active Substance: METHOTREXATE
     Route: 048
  89. METHOTREXATE [Concomitant]
     Active Substance: METHOTREXATE
     Route: 048
  90. METHOTREXATE [Concomitant]
     Active Substance: METHOTREXATE
  91. METHOTREXATE [Concomitant]
     Active Substance: METHOTREXATE
  92. METHOTREXATE [Concomitant]
     Active Substance: METHOTREXATE
     Route: 037
  93. METHOTREXATE [Concomitant]
     Active Substance: METHOTREXATE
     Route: 048
  94. METHOTREXATE [Concomitant]
     Active Substance: METHOTREXATE
  95. METRONIDAZOLE [Concomitant]
     Active Substance: METRONIDAZOLE
     Indication: Product used for unknown indication
  96. OXYCODONE [Concomitant]
     Active Substance: OXYCODONE
     Indication: Product used for unknown indication
  97. OXYCODONE HYDROCHLORIDE [Concomitant]
     Active Substance: OXYCODONE HYDROCHLORIDE
  98. OXYCODONE TEREPHTHALATE [Concomitant]
     Active Substance: OXYCODONE TEREPHTHALATE
     Indication: Product used for unknown indication
  99. PANTOPRAZOLE SODIUM [Concomitant]
     Active Substance: PANTOPRAZOLE SODIUM
     Indication: Product used for unknown indication
  100. PERIOGARD [Concomitant]
     Active Substance: CHLORHEXIDINE GLUCONATE
     Indication: Product used for unknown indication
  101. PHTHALYLSULFATHIAZOLE [Concomitant]
     Active Substance: PHTHALYLSULFATHIAZOLE
     Indication: Rheumatoid arthritis
     Route: 048
  102. PHTHALYLSULFATHIAZOLE [Concomitant]
     Active Substance: PHTHALYLSULFATHIAZOLE
     Route: 048
  103. PLAQUENIL [Concomitant]
     Active Substance: HYDROXYCHLOROQUINE SULFATE
     Indication: Rheumatoid arthritis
     Route: 048
  104. PREDNISONE [Concomitant]
     Active Substance: PREDNISONE
     Indication: Rheumatoid arthritis
     Route: 048
  105. PREDNISONE [Concomitant]
     Active Substance: PREDNISONE
     Route: 048
  106. PSEUDOEPHEDRINE [Concomitant]
     Active Substance: PSEUDOEPHEDRINE
     Indication: Product used for unknown indication
  107. PSEUDOEPHEDRINE HYDROCHLORIDE [Concomitant]
     Active Substance: PSEUDOEPHEDRINE HYDROCHLORIDE
     Indication: Rheumatoid arthritis
  108. CETIRIZINE HYDROCHLORIDE [Concomitant]
     Active Substance: CETIRIZINE HYDROCHLORIDE
     Indication: Rheumatoid arthritis
  109. REMICADE [Concomitant]
     Active Substance: INFLIXIMAB
     Indication: Rheumatoid arthritis
     Route: 058
  110. REMICADE [Concomitant]
     Active Substance: INFLIXIMAB
     Route: 042
  111. REMICADE [Concomitant]
     Active Substance: INFLIXIMAB
     Route: 042
  112. RITUXIMAB [Concomitant]
     Active Substance: RITUXIMAB
     Indication: Rheumatoid arthritis
     Route: 058
  113. RITUXIMAB [Concomitant]
     Active Substance: RITUXIMAB
  114. RITUXIMAB [Concomitant]
     Active Substance: RITUXIMAB
     Route: 042
  115. SULFASALAZINE [Concomitant]
     Active Substance: SULFASALAZINE
     Indication: Product used for unknown indication
  116. FISH OIL [Concomitant]
     Active Substance: FISH OIL
     Indication: Product used for unknown indication
  117. SIMPONI [Concomitant]
     Active Substance: GOLIMUMAB
     Indication: Rheumatoid arthritis
     Route: 058
  118. SIMPONI [Concomitant]
     Active Substance: GOLIMUMAB
     Route: 052
  119. SIMPONI [Concomitant]
     Active Substance: GOLIMUMAB
  120. SIMPONI [Concomitant]
     Active Substance: GOLIMUMAB
     Route: 042
  121. SIMPONI [Concomitant]
     Active Substance: GOLIMUMAB
     Route: 058
  122. STELARA [Concomitant]
     Active Substance: USTEKINUMAB
     Indication: Rheumatoid arthritis
     Route: 058
  123. SULFAMETHOXAZOLE [Concomitant]
     Active Substance: SULFAMETHOXAZOLE
     Indication: Product used for unknown indication
  124. SULFAMETHOXAZOLE\TRIMETHOPRIM [Concomitant]
     Active Substance: SULFAMETHOXAZOLE\TRIMETHOPRIM
     Indication: Product used for unknown indication
  125. SULFASALAZINE [Concomitant]
     Active Substance: SULFASALAZINE
     Indication: Rheumatoid arthritis
     Route: 048
  126. SULFASALAZINE [Concomitant]
     Active Substance: SULFASALAZINE
     Route: 048
  127. SULFASALAZINE [Concomitant]
     Active Substance: SULFASALAZINE
     Route: 048
  128. SULFASALAZINE [Concomitant]
     Active Substance: SULFASALAZINE
     Route: 048
  129. SULFASALAZINE [Concomitant]
     Active Substance: SULFASALAZINE
     Route: 048
  130. SULFASALAZINE [Concomitant]
     Active Substance: SULFASALAZINE
  131. TETRACYCLINE [Concomitant]
     Active Substance: TETRACYCLINE
     Indication: Product used for unknown indication
  132. TRIMETHOPRIM [Concomitant]
     Active Substance: TRIMETHOPRIM
     Indication: Product used for unknown indication
  133. TRIPROLIDINE HYDROCHLORIDE [Concomitant]
     Active Substance: TRIPROLIDINE HYDROCHLORIDE
     Indication: Product used for unknown indication
  134. TYLENOL [Concomitant]
     Active Substance: ACETAMINOPHEN
     Indication: Rheumatoid arthritis
     Route: 042
  135. TYLENOL [Concomitant]
     Active Substance: ACETAMINOPHEN
  136. TYLENOL [Concomitant]
     Active Substance: ACETAMINOPHEN
     Route: 058
  137. TYLENOL WITH CODEINE [Concomitant]
     Active Substance: ACETAMINOPHEN\CODEINE PHOSPHATE
     Indication: Product used for unknown indication
  138. XELJANZ [Concomitant]
     Active Substance: TOFACITINIB CITRATE
     Indication: Rheumatoid arthritis
     Route: 016
  139. XELJANZ [Concomitant]
     Active Substance: TOFACITINIB CITRATE
  140. XELJANZ [Concomitant]
     Active Substance: TOFACITINIB CITRATE
  141. XELJANZ [Concomitant]
     Active Substance: TOFACITINIB CITRATE
  142. XELJANZ [Concomitant]
     Active Substance: TOFACITINIB CITRATE
     Route: 016
  143. ZOPICLONE [Concomitant]
     Active Substance: ZOPICLONE
     Indication: Product used for unknown indication

REACTIONS (1)
  - Death [Fatal]
